FAERS Safety Report 12226984 (Version 2)
Quarter: 2016Q2

REPORT INFORMATION
  Report Type: Report from Study
  Country: AU (occurrence: AU)
  Receive Date: 20160331
  Receipt Date: 20160404
  Transmission Date: 20160815
  Serious: Yes (Other)
  Sender: FDA-Public Use
  Company Number: AU-JNJFOC-20160327659

PATIENT
  Sex: Female

DRUGS (2)
  1. REMICADE [Suspect]
     Active Substance: INFLIXIMAB
     Indication: COLITIS ULCERATIVE
     Route: 042
     Dates: start: 20160209
  2. REMICADE [Suspect]
     Active Substance: INFLIXIMAB
     Indication: COLITIS ULCERATIVE
     Dosage: TOTAL 3 INFUSIONS
     Route: 042
     Dates: start: 20151229

REACTIONS (5)
  - Pain in extremity [Unknown]
  - Rash generalised [Not Recovered/Not Resolved]
  - Anxiety [Unknown]
  - Syncope [Unknown]
  - Breath odour [Unknown]
